FAERS Safety Report 8388167-4 (Version None)
Quarter: 2012Q2

REPORT INFORMATION
  Report Type: 
  Country: None (occurrence: None)
  Receive Date: 20120525
  Receipt Date: 20120521
  Transmission Date: 20120825
  Serious: Yes (Hospitalization, Other)
  Sender: FDA-Public Use
  Company Number: US-BAYER-201029858NA

PATIENT
  Age: 24 Year
  Sex: Female
  Weight: 70 kg

DRUGS (11)
  1. YAZ [Suspect]
     Indication: CONTRACEPTION
     Dosage: UNK UNK, QD
     Dates: start: 20050701, end: 20081201
  2. YAZ [Suspect]
     Indication: ACNE
     Dosage: UNK UNK, QD
     Route: 048
     Dates: start: 20081201, end: 20090401
  3. YASMIN [Suspect]
     Indication: ACNE
     Dosage: UNK UNK, QD
     Route: 048
     Dates: start: 20050701, end: 20081201
  4. BACTRIM [Concomitant]
     Route: 048
  5. SULFAMETHOXAZOLE AND TRIMETHOPRIM [Concomitant]
     Indication: ACNE
  6. MINOCYCLINE HCL [Concomitant]
     Indication: ACNE
  7. BENZACLIN [Concomitant]
     Route: 061
  8. YASMIN [Suspect]
     Indication: CONTRACEPTION
     Dosage: UNK, QD
     Dates: start: 20081201, end: 20090401
  9. DOXYCYCLINE [Concomitant]
     Indication: ACNE
  10. DIFFERIN [Concomitant]
     Indication: ACNE
     Route: 061
  11. SEPTRA DS [Concomitant]

REACTIONS (2)
  - CHOLECYSTITIS CHRONIC [None]
  - CHOLELITHIASIS [None]
